FAERS Safety Report 15731084 (Version 1)
Quarter: 2018Q4

REPORT INFORMATION
  Report Type: Spontaneous
  Country: US (occurrence: US)
  Receive Date: 20181217
  Receipt Date: 20181217
  Transmission Date: 20190205
  Serious: Yes (Other)
  Sender: FDA-Public Use
  Company Number: US-EAGLE PHARMACEUTICALS, INC.-US-2018EAG000090

PATIENT

DRUGS (1)
  1. RYANODEX [Suspect]
     Active Substance: DANTROLENE SODIUM
     Indication: HYPERTHERMIA MALIGNANT
     Dosage: ADMINISTERED AT A DOSE OF 0.25 MG EVERY 5 MINS
     Route: 042
     Dates: start: 201806, end: 201806

REACTIONS (8)
  - Blindness unilateral [Not Recovered/Not Resolved]
  - Retinal tear [Not Recovered/Not Resolved]
  - Injection site extravasation [Not Recovered/Not Resolved]
  - Incorrect drug administration rate [Unknown]
  - Malaise [Unknown]
  - Hot flush [Unknown]
  - Retinal detachment [Unknown]
  - Chest discomfort [Unknown]

NARRATIVE: CASE EVENT DATE: 2018
